FAERS Safety Report 16281796 (Version 2)
Quarter: 2019Q3

REPORT INFORMATION
  Report Type: Spontaneous
  Country: US (occurrence: US)
  Receive Date: 20190507
  Receipt Date: 20190717
  Transmission Date: 20191004
  Serious: No
  Sender: FDA-Public Use
  Company Number: US-PFIZER INC-2019044470

PATIENT
  Age: 75 Year
  Sex: Female
  Weight: 67.13 kg

DRUGS (1)
  1. DESVENLAFAXINE SUCCINATE MONOHYDRATE [Suspect]
     Active Substance: DESVENLAFAXINE SUCCINATE
     Indication: DEPRESSION
     Dosage: 100 MG, 1X/DAY (AT BEDTIME)
     Dates: start: 2014

REACTIONS (1)
  - Drug ineffective [Recovered/Resolved]
